FAERS Safety Report 9669468 (Version 1)
Quarter: 2013Q4

REPORT INFORMATION
  Report Type: Spontaneous
  Country: AU (occurrence: None)
  Receive Date: 20131101
  Receipt Date: 20131101
  Transmission Date: 20140711
  Serious: Yes (Hospitalization)
  Sender: FDA-Public Use
  Company Number: SYM-2013-12209

PATIENT
  Age: 75 Year
  Sex: Female

DRUGS (2)
  1. CARDIZEM [Suspect]
  2. ACLASTA [Suspect]
     Route: 042
     Dates: start: 20120813

REACTIONS (3)
  - Circulatory collapse [None]
  - Bradycardia [None]
  - Diverticulitis [None]
